FAERS Safety Report 7549695-4 (Version None)
Quarter: 2011Q2

REPORT INFORMATION
  Report Type: 
  Country: None (occurrence: None)
  Receive Date: 20110615
  Receipt Date: 20110606
  Transmission Date: 20111010
  Serious: Yes (Hospitalization)
  Sender: FDA-Public Use
  Company Number: US-ASTRAZENECA-2010SE19219

PATIENT
  Age: 51 Year
  Sex: Female

DRUGS (4)
  1. CRESTOR [Suspect]
     Route: 048
  2. CRESTOR [Suspect]
     Route: 048
  3. SANDOSTATIN [Concomitant]
  4. LIPITOR [Concomitant]

REACTIONS (3)
  - VOMITING [None]
  - ABDOMINAL DISCOMFORT [None]
  - NECK EXPLORATION [None]
